FAERS Safety Report 8509768-6 (Version None)
Quarter: 2012Q2

REPORT INFORMATION
  Report Type: 
  Country: None (occurrence: None)
  Receive Date: 20120405
  Receipt Date: 20090520
  Transmission Date: 20120825
  Serious: Yes (Disabling, Other)
  Sender: FDA-Public Use
  Company Number: PHEH2009US05110

PATIENT
  Age: 82 Year
  Sex: Female
  Weight: 53.5 kg

DRUGS (6)
  1. METOPROLOL TARTRATE [Concomitant]
  2. LASIX [Concomitant]
  3. RECLAST [Suspect]
     Indication: OSTEOPOROSIS
     Dosage: 5 MG, YEARLY, INTRAVENOUS
     Route: 042
     Dates: start: 20081013, end: 20081013
  4. VASOTEC [Concomitant]
  5. REMERON [Concomitant]
  6. MOTRIN [Concomitant]

REACTIONS (4)
  - BLOOD CREATININE INCREASED [None]
  - OEDEMA PERIPHERAL [None]
  - BLOOD ALBUMIN DECREASED [None]
  - GLOMERULAR FILTRATION RATE DECREASED [None]
